FAERS Safety Report 8111580-7 (Version None)
Quarter: 2012Q1

REPORT INFORMATION
  Report Type: 
  Country: None (occurrence: None)
  Receive Date: 20120203
  Receipt Date: 20120125
  Transmission Date: 20120608
  Serious: Yes (Other)
  Sender: FDA-Public Use
  Company Number: JP-PFIZER INC-2012020113

PATIENT
  Age: 39 Year
  Sex: Female

DRUGS (2)
  1. CORTRIL [Suspect]
     Dosage: 10 MG
     Route: 048
  2. CORTRIL [Suspect]
     Dosage: 15 MG/DAY
     Route: 048

REACTIONS (2)
  - DIABETES MELLITUS [None]
  - LYMPHOCYTIC HYPOPHYSITIS [None]
